FAERS Safety Report 4498343-9 (Version None)
Quarter: 2004Q4

REPORT INFORMATION
  Report Type: 
  Country: None (occurrence: None)
  Receive Date: 20041104
  Receipt Date: 20041029
  Transmission Date: 20050328
  Serious: Yes (Life-Threatening)
  Sender: FDA-Public Use
  Company Number: 2004-121715-NL

PATIENT
  Age: 52 Year
  Sex: Male

DRUGS (12)
  1. MIRTAZAPINE [Suspect]
     Indication: EMOTIONAL DISORDER
     Dosage: 45 MG, ORAL
     Route: 048
     Dates: end: 20040831
  2. MIRTAZAPINE [Suspect]
     Indication: PERSONALITY DISORDER
     Dosage: 45 MG, ORAL
     Route: 048
     Dates: end: 20040831
  3. METHADONE HCL [Suspect]
     Indication: ABNORMAL BEHAVIOUR
     Dosage: 60 MG, ORAL
     Route: 048
     Dates: start: 20030601, end: 20040831
  4. METHADONE HCL [Suspect]
     Indication: MENTAL DISORDER
     Dosage: 60 MG, ORAL
     Route: 048
     Dates: start: 20030601, end: 20040831
  5. VALPROATE SODIUM [Suspect]
     Indication: EMOTIONAL DISORDER
     Dosage: 1300 MG, ORAL
     Route: 048
  6. VALPROATE SODIUM [Suspect]
     Indication: PERSONALITY DISORDER
     Dosage: 1300 MG, ORAL
     Route: 048
  7. ESOMEPRAZOLE MAGNESIUM [Suspect]
     Indication: EMOTIONAL DISORDER
     Dosage: 40 MG, ORAL
     Route: 048
  8. ESOMEPRAZOLE MAGNESIUM [Suspect]
     Indication: PERSONALITY DISORDER
     Dosage: 40 MG, ORAL
     Route: 048
  9. BECOZYM [Concomitant]
  10. THIAMINE HCL [Concomitant]
  11. ACETYLCYSTEINE [Concomitant]
  12. OXAZEPAM [Concomitant]

REACTIONS (13)
  - ACTIVITIES OF DAILY LIVING IMPAIRED [None]
  - CARDIAC ARREST [None]
  - COMMUNICATION DISORDER [None]
  - CYANOSIS [None]
  - DRUG LEVEL ABOVE THERAPEUTIC [None]
  - ELECTROCARDIOGRAM QT CORRECTED INTERVAL PROLONGED [None]
  - ENCEPHALOPATHY [None]
  - FAECAL INCONTINENCE [None]
  - FEELING ABNORMAL [None]
  - HYPOKALAEMIA [None]
  - TORSADE DE POINTES [None]
  - URINARY INCONTINENCE [None]
  - VENTRICULAR FIBRILLATION [None]
